FAERS Safety Report 12940074 (Version 1)
Quarter: 2016Q4

REPORT INFORMATION
  Report Type: Spontaneous
  Country: US (occurrence: US)
  Receive Date: 20161115
  Receipt Date: 20161115
  Transmission Date: 20170207
  Serious: Yes (Death, Life-Threatening, Hospitalization)
  Sender: FDA-Public Use
  Company Number: None

PATIENT
  Age: 60 Year
  Sex: Female
  Weight: 97 kg

DRUGS (1)
  1. ALTEPLASE [Suspect]
     Active Substance: ALTEPLASE
     Indication: ISCHAEMIC STROKE
     Dosage: ?          OTHER FREQUENCY:ONCE;?
     Route: 041
     Dates: start: 20160514, end: 20160514

REACTIONS (9)
  - Obstructive airways disorder [None]
  - Respiratory arrest [None]
  - Corneal reflex decreased [None]
  - Areflexia [None]
  - Cyanosis [None]
  - Anaphylactic reaction [None]
  - Mouth haemorrhage [None]
  - Pupillary reflex impaired [None]
  - Cardiac arrest [None]

NARRATIVE: CASE EVENT DATE: 20160514
